FAERS Safety Report 8878655 (Version 1)
Quarter: 2012Q4

REPORT INFORMATION
  Report Type: 
  Country: ES (occurrence: ES)
  Receive Date: 20121026
  Receipt Date: 20121026
  Transmission Date: 20130627
  Serious: No
  Sender: FDA-Public Use
  Company Number: PHHY2012ES096179

PATIENT
  Age: 57 Year
  Sex: Female

DRUGS (7)
  1. TASIGNA [Suspect]
     Indication: CHRONIC MYELOID LEUKAEMIA
     Dosage: 300 mg, Q12H
     Dates: start: 20120625
  2. NOVOMIX [Concomitant]
  3. METFORMIN [Concomitant]
  4. INSULIN [Concomitant]
  5. RILAST [Concomitant]
  6. LISINOPRIL [Concomitant]
  7. ATORVASTATIN [Concomitant]
     Dosage: UNK

REACTIONS (2)
  - Alopecia [Unknown]
  - Nail disorder [Unknown]
